FAERS Safety Report 6377592-9 (Version None)
Quarter: 2009Q3

REPORT INFORMATION
  Report Type: 
  Country: None (occurrence: None)
  Receive Date: 20090923
  Receipt Date: 20090923
  Transmission Date: 20100115
  Serious: Yes (Life-Threatening)
  Sender: FDA-Public Use
  Company Number: None

PATIENT
  Age: 52 Year
  Sex: Female

DRUGS (9)
  1. AMLODIPINE [Suspect]
     Indication: HYPERTENSION
     Dosage: ? AMLODIPINE PO PAST 3-4 YEARS
     Route: 048
  2. BENAZAPRIL [Suspect]
     Indication: HYPERTENSION
     Dosage: 20 MG BENAZAPRIL QD PAST 3-4 YEARS
  3. AMBIEN CR [Concomitant]
  4. OXYCODONE HCL [Concomitant]
  5. CLONAZEPAM [Concomitant]
  6. GABAPENTIN [Concomitant]
  7. LEXAPRO [Concomitant]
  8. FENTANYL TRANSDERMAL SYSTEM [Concomitant]
  9. HYDROCHLOROTHIAZIDE [Concomitant]

REACTIONS (1)
  - LIP SWELLING [None]
